FAERS Safety Report 10068917 (Version 2)
Quarter: 2014Q2

REPORT INFORMATION
  Report Type: Spontaneous
  Country: US (occurrence: US)
  Receive Date: 20140409
  Receipt Date: 20140509
  Transmission Date: 20141212
  Serious: Yes (Hospitalization)
  Sender: FDA-Public Use
  Company Number: US-FRI-1000066241

PATIENT
  Age: 52 Year
  Sex: Female

DRUGS (6)
  1. BYSTOLIC [Suspect]
     Indication: HYPERTENSION
     Dosage: 2.5 MG
     Route: 048
  2. OMEPRAZOLE [Concomitant]
  3. LEVOTHYROXINE [Concomitant]
  4. ALPRAZOLAM [Concomitant]
  5. ZOLPIDEM [Concomitant]
  6. ALLEGRA [Concomitant]

REACTIONS (3)
  - White blood cell count increased [Recovered/Resolved]
  - Abdominal pain [Recovering/Resolving]
  - Gastritis [Not Recovered/Not Resolved]
